FAERS Safety Report 9920001 (Version 1)
Quarter: 2014Q1

REPORT INFORMATION
  Report Type: Spontaneous
  Country: BA (occurrence: BA)
  Receive Date: 20140224
  Receipt Date: 20140224
  Transmission Date: 20141002
  Serious: Yes (Other)
  Sender: FDA-Public Use
  Company Number: BA-TEVA-464089ISR

PATIENT
  Age: 61 Year
  Sex: Female
  Weight: 100 kg

DRUGS (6)
  1. CARBOPLATIN PLIVA 10 MG/ML [Suspect]
     Indication: OVARIAN CANCER METASTATIC
     Route: 042
  2. DEXASON [Concomitant]
     Dosage: 4 MG/ML 1X3 AMP (GALENIKA)
  3. KYRIL [Concomitant]
     Dosage: 3 MG/3 ML  1X1 IV (ROCHE)
     Route: 042
  4. SYNOPEN [Concomitant]
     Dosage: 20 MG/2 ML 1X1 IV (PLIVA)
     Route: 042
  5. NEXIUM [Concomitant]
     Dosage: 20 MG TBL 1X1 (ASTRA ZENECA)
  6. PAKLITAXEL EBEWE [Concomitant]
     Dosage: 6 MG/ML (EBEWE)

REACTIONS (3)
  - Chest discomfort [Recovered/Resolved]
  - Cyanosis [Recovered/Resolved]
  - Rash [Recovered/Resolved]
